FAERS Safety Report 21584240 (Version 1)
Quarter: 2022Q4

REPORT INFORMATION
  Report Type: Spontaneous
  Country: FR (occurrence: FR)
  Receive Date: 20221111
  Receipt Date: 20221111
  Transmission Date: 20230112
  Serious: Yes (Hospitalization)
  Sender: FDA-Public Use
  Company Number: None

PATIENT
  Age: 35 Year
  Sex: Male
  Weight: 60 kg

DRUGS (1)
  1. ACYCLOVIR [Suspect]
     Active Substance: ACYCLOVIR
     Indication: Meningoencephalitis herpetic
     Dosage: FREQUENCY TIME : 1 DAY, DURATION: 1 DAY, UNIT DOSE: 800 MG
     Route: 065
     Dates: start: 20221017, end: 20221018

REACTIONS (3)
  - Product prescribing error [Recovered/Resolved]
  - Acute kidney injury [Recovering/Resolving]
  - Incorrect dosage administered [Recovered/Resolved]

NARRATIVE: CASE EVENT DATE: 20221017
